FAERS Safety Report 14563454 (Version 1)
Quarter: 2018Q1

REPORT INFORMATION
  Report Type: Spontaneous
  Country: US (occurrence: US)
  Receive Date: 20180222
  Receipt Date: 20180222
  Transmission Date: 20180509
  Serious: No
  Sender: FDA-Public Use
  Company Number: US-GLAXOSMITHKLINE-US2018027662

PATIENT
  Age: 58 Year
  Sex: Male

DRUGS (2)
  1. BREO ELLIPTA [Suspect]
     Active Substance: FLUTICASONE FUROATE\VILANTEROL TRIFENATATE
     Indication: BRONCHIAL HYPERREACTIVITY
     Dosage: 1 PUFF(S), 1D
     Route: 055
     Dates: start: 201701
  2. FISH OIL [Concomitant]
     Active Substance: FISH OIL

REACTIONS (7)
  - Eyelid oedema [Unknown]
  - Skin discolouration [Recovered/Resolved]
  - Skin atrophy [Recovered/Resolved]
  - Off label use [Unknown]
  - Eye pruritus [Unknown]
  - Product use in unapproved indication [Unknown]
  - Hypersensitivity [Unknown]

NARRATIVE: CASE EVENT DATE: 201712
